FAERS Safety Report 4582334-3 (Version None)
Quarter: 2005Q1

REPORT INFORMATION
  Report Type: 
  Country: None (occurrence: None)
  Receive Date: 20050215
  Receipt Date: 20050202
  Transmission Date: 20050727
  Serious: Yes (Other)
  Sender: FDA-Public Use
  Company Number: US-JNJFOC-20030800581

PATIENT
  Sex: Male
  Weight: 72.58 kg

DRUGS (13)
  1. REMICADE [Suspect]
     Route: 042
  2. REMICADE [Suspect]
     Route: 042
  3. REMICADE [Suspect]
     Route: 042
  4. REMICADE [Suspect]
     Indication: CROHN'S DISEASE
     Route: 042
  5. PENTASA [Concomitant]
     Indication: CROHN'S DISEASE
     Route: 065
  6. ASACOL [Concomitant]
     Route: 065
  7. PREDNISONE [Concomitant]
  8. PERCOCET [Concomitant]
  9. PERCOCET [Concomitant]
     Indication: PAIN
  10. PHENERGAN [Concomitant]
     Indication: NAUSEA
  11. PEPCID [Concomitant]
     Indication: DUODENITIS
  12. BENADRYL [Concomitant]
     Indication: PREMEDICATION
  13. TYLENOL [Concomitant]
     Indication: PREMEDICATION

REACTIONS (7)
  - ANXIETY [None]
  - CHILLS [None]
  - CONVULSION [None]
  - DYSPNOEA [None]
  - INFUSION RELATED REACTION [None]
  - RESPIRATORY DISORDER [None]
  - SKIN DISCOLOURATION [None]
